FAERS Safety Report 12561963 (Version 3)
Quarter: 2016Q4

REPORT INFORMATION
  Report Type: Spontaneous
  Country: US (occurrence: US)
  Receive Date: 20160715
  Receipt Date: 20161007
  Transmission Date: 20170207
  Serious: Yes (Hospitalization)
  Sender: FDA-Public Use
  Company Number: US-JNJFOC-20120310729

PATIENT
  Age: 55 Year
  Sex: Female

DRUGS (16)
  1. REMICADE [Suspect]
     Active Substance: INFLIXIMAB
     Indication: PSORIASIS
     Dosage: 100 MG FOR SOLUTION 5 MG/KG
     Route: 042
     Dates: start: 20111020
  2. REMICADE [Suspect]
     Active Substance: INFLIXIMAB
     Indication: CROHN^S DISEASE
     Dosage: 100 MG FOR SOLUTION 5 MG/KG
     Route: 042
     Dates: start: 20111020
  3. REMICADE [Suspect]
     Active Substance: INFLIXIMAB
     Indication: CROHN^S DISEASE
     Route: 042
     Dates: end: 20120514
  4. REMICADE [Suspect]
     Active Substance: INFLIXIMAB
     Indication: PSORIASIS
     Route: 042
     Dates: start: 20110906
  5. REMICADE [Suspect]
     Active Substance: INFLIXIMAB
     Indication: PSORIASIS
     Route: 042
     Dates: end: 20140731
  6. REMICADE [Suspect]
     Active Substance: INFLIXIMAB
     Indication: PSORIASIS
     Route: 042
     Dates: end: 201401
  7. REMICADE [Suspect]
     Active Substance: INFLIXIMAB
     Indication: PSORIASIS
     Dosage: 100 MG FOR SOLUTION 10 MG/KG
     Route: 042
     Dates: start: 20120813
  8. REMICADE [Suspect]
     Active Substance: INFLIXIMAB
     Indication: CROHN^S DISEASE
     Route: 042
     Dates: start: 20110906
  9. REMICADE [Suspect]
     Active Substance: INFLIXIMAB
     Indication: CROHN^S DISEASE
     Route: 042
     Dates: end: 20150129
  10. REMICADE [Suspect]
     Active Substance: INFLIXIMAB
     Indication: CROHN^S DISEASE
     Route: 042
     Dates: end: 201401
  11. REMICADE [Suspect]
     Active Substance: INFLIXIMAB
     Indication: PSORIASIS
     Dosage: 100 MG FOR SOLUTION 10 MG/KG
     Route: 042
     Dates: start: 20120319
  12. REMICADE [Suspect]
     Active Substance: INFLIXIMAB
     Indication: PSORIASIS
     Route: 042
     Dates: end: 20120514
  13. REMICADE [Suspect]
     Active Substance: INFLIXIMAB
     Indication: CROHN^S DISEASE
     Route: 042
     Dates: end: 20140731
  14. REMICADE [Suspect]
     Active Substance: INFLIXIMAB
     Indication: CROHN^S DISEASE
     Dosage: 100 MG FOR SOLUTION 10 MG/KG
     Route: 042
     Dates: start: 20120813
  15. REMICADE [Suspect]
     Active Substance: INFLIXIMAB
     Indication: CROHN^S DISEASE
     Dosage: 100 MG FOR SOLUTION 10 MG/KG
     Route: 042
     Dates: start: 20120319
  16. REMICADE [Suspect]
     Active Substance: INFLIXIMAB
     Indication: PSORIASIS
     Route: 042
     Dates: end: 20150129

REACTIONS (4)
  - Sepsis [Unknown]
  - Apparent death [Unknown]
  - Renal abscess [Unknown]
  - Drug effect decreased [Unknown]

NARRATIVE: CASE EVENT DATE: 201310
